FAERS Safety Report 11747298 (Version 2)
Quarter: 2016Q1

REPORT INFORMATION
  Report Type: Spontaneous
  Country: DE (occurrence: DE)
  Receive Date: 20151117
  Receipt Date: 20160204
  Transmission Date: 20160525
  Serious: Yes (Hospitalization, Other)
  Sender: FDA-Public Use
  Company Number: DE-BAXTER-2015BAX060814

PATIENT
  Age: 58 Year
  Sex: Female
  Weight: 73 kg

DRUGS (7)
  1. ENDOXAN 500MG [Suspect]
     Active Substance: CYCLOPHOSPHAMIDE
     Dosage: 3RD CYCLE
     Route: 042
     Dates: start: 20151008
  2. ENDOXAN 500MG [Suspect]
     Active Substance: CYCLOPHOSPHAMIDE
     Dosage: 4TH CYCLE (CUMULATIVE DOSE: 2000 MG)
     Route: 042
     Dates: start: 20151028
  3. ENDOXAN 500MG [Suspect]
     Active Substance: CYCLOPHOSPHAMIDE
     Indication: IDIOPATHIC PULMONARY FIBROSIS
     Dosage: 2ND CYCLE
     Route: 042
     Dates: start: 20150915
  4. COTRIMOXAZOL [Concomitant]
     Active Substance: SULFAMETHOXAZOLE\TRIMETHOPRIM
     Indication: IDIOPATHIC PULMONARY FIBROSIS
     Route: 065
     Dates: start: 201501
  5. COTRIMOXAZOL [Concomitant]
     Active Substance: SULFAMETHOXAZOLE\TRIMETHOPRIM
     Indication: PROPHYLAXIS
  6. ENDOXAN 500MG [Suspect]
     Active Substance: CYCLOPHOSPHAMIDE
     Indication: SJOGREN^S SYNDROME
     Dosage: 1ST CYCLE
     Route: 042
     Dates: start: 20150821
  7. UROMITEXAN 400 MG [Suspect]
     Active Substance: MESNA
     Indication: PROPHYLAXIS
     Dosage: GIVEN AT 12:30 NOON, 4:30 PM AND 8:30 PM; CUMULATIVE DOSE 750MG
     Route: 042
     Dates: start: 20151028, end: 20151028

REACTIONS (5)
  - Chills [Recovered/Resolved]
  - Pyrexia [Recovered/Resolved]
  - Alveolitis [Unknown]
  - Fatigue [Recovered/Resolved]
  - Erythema [Recovered/Resolved]

NARRATIVE: CASE EVENT DATE: 201510
